FAERS Safety Report 23176546 (Version 1)
Quarter: 2023Q4

REPORT INFORMATION
  Report Type: Spontaneous
  Country: US (occurrence: None)
  Receive Date: 20231110
  Receipt Date: 20231110
  Transmission Date: 20240109
  Serious: Yes (Other)
  Sender: FDA-Public Use
  Company Number: None

PATIENT
  Age: 42 Year
  Sex: Female

DRUGS (6)
  1. SKYRIZI [Suspect]
     Active Substance: RISANKIZUMAB-RZAA
     Indication: Crohn^s disease
     Dosage: 360 MG EVERY 8 WEEKS SUBCUTANEOUS
     Route: 058
  2. VITAMINS [Concomitant]
     Active Substance: VITAMINS
  3. VITAMIN B12 [Concomitant]
     Active Substance: CYANOCOBALAMIN
  4. CETIRIZINE [Concomitant]
     Active Substance: CETIRIZINE HYDROCHLORIDE
  5. fluticasone 50mcg nasal spraay [Concomitant]
  6. TRAMADOL [Concomitant]
     Active Substance: TRAMADOL\TRAMADOL HYDROCHLORIDE

REACTIONS (4)
  - Psoriatic arthropathy [None]
  - Condition aggravated [None]
  - Headache [None]
  - Influenza like illness [None]

NARRATIVE: CASE EVENT DATE: 20230810
